FAERS Safety Report 7509430-2 (Version None)
Quarter: 2011Q2

REPORT INFORMATION
  Report Type: 
  Country: None (occurrence: None)
  Receive Date: 20110527
  Receipt Date: 20110520
  Transmission Date: 20111010
  Serious: Yes (Hospitalization)
  Sender: FDA-Public Use
  Company Number: ES-ELI_LILLY_AND_COMPANY-ES201104002607

PATIENT
  Sex: Male
  Weight: 89.9 kg

DRUGS (6)
  1. BETADINE [Concomitant]
  2. MICARDIS HCT [Concomitant]
     Indication: HYPERTENSION
     Dosage: UNK
     Dates: start: 20090108
  3. EUTIROX [Concomitant]
     Dosage: UNK
     Dates: start: 20070821
  4. HIDROALTESONA [Concomitant]
     Dosage: UNK
     Dates: start: 20030101
  5. ATORVASTATIN CALCIUM [Concomitant]
     Indication: HYPERCHOLESTEROLAEMIA
     Dosage: 40 MG, UNK
     Dates: start: 20090701
  6. SOMATROPIN RDNA [Suspect]
     Indication: GROWTH HORMONE DEFICIENCY
     Dosage: 0.4 MG, QD
     Dates: start: 20050719

REACTIONS (3)
  - CARDIAC FAILURE [None]
  - FEMUR FRACTURE [None]
  - FALL [None]
